FAERS Safety Report 8854567 (Version 3)
Quarter: 2014Q1

REPORT INFORMATION
  Report Type: Report from Study
  Country: JP (occurrence: JP)
  Receive Date: 20121023
  Receipt Date: 20140116
  Transmission Date: 20141002
  Serious: Yes (Other)
  Sender: FDA-Public Use
  Company Number: JP-VERTEX PHARMACEUTICAL INC.-2012-019660

PATIENT
  Age: 49 Year
  Sex: Female

DRUGS (13)
  1. VX-950 (TELAPREVIR) [Suspect]
     Indication: CHRONIC HEPATITIS C
     Dosage: 1500 MG, QD
     Route: 048
     Dates: start: 20120214, end: 20120513
  2. PEGINTRON [Suspect]
     Indication: CHRONIC HEPATITIS C
     Dosage: 1.5 ?G/KG, QW
     Route: 058
     Dates: start: 20120214, end: 20120731
  3. REBETOL [Suspect]
     Indication: CHRONIC HEPATITIS C
     Dosage: 400 MG, QD
     Route: 048
     Dates: start: 20120214, end: 20120326
  4. REBETOL [Suspect]
     Dosage: 200 MG, QD
     Route: 048
     Dates: start: 20120327, end: 20120507
  5. REBETOL [Suspect]
     Dosage: 400 MG, QD
     Route: 048
     Dates: start: 20120508, end: 20120611
  6. REBETOL [Suspect]
     Dosage: 600 MG, QD
     Route: 048
     Dates: start: 20120612, end: 20120725
  7. PREMINENT [Concomitant]
     Dosage: 1 DF, ONLY WHEN BP IS HIGHER THAN 100
     Route: 048
     Dates: end: 20120227
  8. MYSLEE [Concomitant]
     Dosage: 5 MG, QD
     Route: 048
     Dates: start: 20120213, end: 20120214
  9. MYSLEE [Concomitant]
     Dosage: 5 MG, QD
     Route: 048
     Dates: start: 20120410, end: 20120723
  10. MAGLAX [Concomitant]
     Dosage: 500 MG, QD
     Route: 048
     Dates: start: 20120215, end: 20120723
  11. FLUOROMETHOLONE [Concomitant]
     Dosage: UNK, QID
     Route: 031
     Dates: start: 20120313, end: 20120515
  12. HUSTAZOL [Concomitant]
     Dosage: 10 MG, PRN
     Route: 048
     Dates: start: 20120424, end: 20120430
  13. GRANDAXIN [Concomitant]
     Indication: PRODUCT USED FOR UNKNOWN INDICATION
     Dosage: 150 MG, QD
     Route: 048
     Dates: start: 20120703

REACTIONS (1)
  - White blood cell count decreased [Recovered/Resolved]
